FAERS Safety Report 19689001 (Version 1)
Quarter: 2021Q3

REPORT INFORMATION
  Report Type: Other
  Country: CN (occurrence: CN)
  Receive Date: 20210812
  Receipt Date: 20210812
  Transmission Date: 20211014
  Serious: Yes (Death, Other)
  Sender: FDA-Public Use
  Company Number: CN-ROCHE-2142844

PATIENT
  Age: 55 Year
  Sex: Male
  Weight: 54 kg

DRUGS (1)
  1. AVASTIN [Suspect]
     Active Substance: BEVACIZUMAB
     Indication: RECTAL CANCER
     Route: 041
     Dates: start: 20151128

REACTIONS (3)
  - Metastatic neoplasm [Fatal]
  - Protein urine present [Unknown]
  - Pulmonary mass [Unknown]
